FAERS Safety Report 22604562 (Version 1)
Quarter: 2023Q2

REPORT INFORMATION
  Report Type: Spontaneous
  Country: IN (occurrence: IN)
  Receive Date: 20230615
  Receipt Date: 20230615
  Transmission Date: 20230722
  Serious: Yes (Other)
  Sender: FDA-Public Use
  Company Number: IN-Accord-361070

PATIENT
  Age: 17 Year
  Sex: Male

DRUGS (1)
  1. TOPIRAMATE [Suspect]
     Active Substance: TOPIRAMATE
     Indication: Epilepsy

REACTIONS (3)
  - Myopia [Recovered/Resolved]
  - Chorioretinal folds [Recovered/Resolved]
  - Flat anterior chamber of eye [Recovered/Resolved]
